FAERS Safety Report 13093119 (Version 1)
Quarter: 2017Q1

REPORT INFORMATION
  Report Type: Spontaneous
  Country: US (occurrence: US)
  Receive Date: 20170106
  Receipt Date: 20170106
  Transmission Date: 20170428
  Serious: Yes (Life-Threatening)
  Sender: FDA-Public Use
  Company Number: None

PATIENT
  Age: 86 Year
  Sex: Female
  Weight: 44 kg

DRUGS (1)
  1. TRAMADOL. [Suspect]
     Active Substance: TRAMADOL
     Indication: PAIN
     Route: 048
     Dates: start: 20130109, end: 20130113

REACTIONS (5)
  - Lip swelling [None]
  - Hypernatraemia [None]
  - Angioedema [None]
  - Lethargy [None]
  - Mental status changes [None]

NARRATIVE: CASE EVENT DATE: 20130110
